FAERS Safety Report 5326273-9 (Version None)
Quarter: 2007Q2

REPORT INFORMATION
  Report Type: 
  Country: None (occurrence: None)
  Receive Date: 20070514
  Receipt Date: 20070514
  Transmission Date: 20071010
  Serious: Yes (Other)
  Sender: FDA-Public Use
  Company Number: None

PATIENT
  Age: 56 Year
  Sex: Female
  Weight: 61.2356 kg

DRUGS (1)
  1. PREDNISONE [Suspect]
     Indication: HYPERSENSITIVITY
     Dosage: 10 MG X4 -2 DAYS- THEN DECREAS DAILY PO
     Route: 048
     Dates: start: 20070504, end: 20070508

REACTIONS (8)
  - ANXIETY [None]
  - BLOOD PRESSURE INCREASED [None]
  - CHEST PAIN [None]
  - CONFUSIONAL STATE [None]
  - DISORIENTATION [None]
  - HEADACHE [None]
  - INSOMNIA [None]
  - MUSCULAR WEAKNESS [None]
